FAERS Safety Report 5063591-6 (Version None)
Quarter: 2006Q3

REPORT INFORMATION
  Report Type: 
  Country: None (occurrence: None)
  Receive Date: 20060727
  Receipt Date: 20060609
  Transmission Date: 20061208
  Serious: Yes (Life-Threatening, Hospitalization)
  Sender: FDA-Public Use
  Company Number: US-BRISTOL-MYERS SQUIBB COMPANY-13407325

PATIENT
  Age: 62 Year
  Sex: Female

DRUGS (3)
  1. ERBITUX [Suspect]
     Indication: NEOPLASM MALIGNANT
     Dosage: INITIAL DOSE.  ADMINISTERED 13 ML=26 MG OF A TOTAL DOSE OF 688 MG.
     Route: 042
     Dates: start: 20060510, end: 20060510
  2. BENADRYL [Concomitant]
     Indication: PREMEDICATION
     Route: 042
     Dates: start: 20060510, end: 20060510
  3. HYDROCORTISONE TAB [Concomitant]
     Indication: PREMEDICATION
     Route: 042
     Dates: start: 20060510, end: 20060510

REACTIONS (3)
  - DYSPNOEA [None]
  - HYPOTENSION [None]
  - MENTAL IMPAIRMENT [None]
